FAERS Safety Report 7050905-0 (Version None)
Quarter: 2010Q4

REPORT INFORMATION
  Report Type: 
  Country: None (occurrence: None)
  Receive Date: 20101019
  Receipt Date: 20101011
  Transmission Date: 20110411
  Serious: Yes (Other)
  Sender: FDA-Public Use
  Company Number: FR-TEVA-251781ISR

PATIENT
  Age: 51 Year
  Sex: Male

DRUGS (3)
  1. FLUOROURACIL [Suspect]
     Indication: LUNG NEOPLASM MALIGNANT
  2. FOLINIC ACID [Concomitant]
  3. IRINOTECAN HCL [Concomitant]

REACTIONS (1)
  - CARDIOGENIC SHOCK [None]
